FAERS Safety Report 16300790 (Version 2)
Quarter: 2021Q1

REPORT INFORMATION
  Report Type: Spontaneous
  Country: US (occurrence: US)
  Receive Date: 20190510
  Receipt Date: 20210226
  Transmission Date: 20210419
  Serious: Yes (Other)
  Sender: FDA-Public Use
  Company Number: US-ASTRAZENECA-2019SE67319

PATIENT
  Age: 57 Year
  Sex: Male
  Weight: 105.7 kg

DRUGS (41)
  1. ALLOPURINOL. [Concomitant]
     Active Substance: ALLOPURINOL
  2. PLAVIX [Concomitant]
     Active Substance: CLOPIDOGREL BISULFATE
  3. LITHIUM. [Concomitant]
     Active Substance: LITHIUM
  4. RANITIDINE. [Concomitant]
     Active Substance: RANITIDINE
  5. LIDODERM [Concomitant]
     Active Substance: LIDOCAINE
  6. FERROUS SULFATE. [Concomitant]
     Active Substance: FERROUS SULFATE
  7. LOSARTAN. [Concomitant]
     Active Substance: LOSARTAN
  8. OXYCODONE [Concomitant]
     Active Substance: OXYCODONE
  9. PROTONIX [Suspect]
     Active Substance: PANTOPRAZOLE SODIUM
     Indication: GASTROOESOPHAGEAL REFLUX DISEASE
     Route: 065
  10. ARIPIPRAZOLE. [Concomitant]
     Active Substance: ARIPIPRAZOLE
  11. ARIPIPRAZOLE. [Concomitant]
     Active Substance: ARIPIPRAZOLE
  12. ISOSORBIDE MONONITRATE. [Concomitant]
     Active Substance: ISOSORBIDE MONONITRATE
  13. NEXIUM [Suspect]
     Active Substance: ESOMEPRAZOLE MAGNESIUM
     Indication: GASTROOESOPHAGEAL REFLUX DISEASE
     Route: 048
  14. PRILOSEC [Suspect]
     Active Substance: OMEPRAZOLE MAGNESIUM
     Indication: GASTROOESOPHAGEAL REFLUX DISEASE
     Route: 048
  15. PROTONIX [Suspect]
     Active Substance: PANTOPRAZOLE SODIUM
     Indication: GASTROOESOPHAGEAL REFLUX DISEASE
     Dosage: GENERIC
     Route: 065
  16. ASPIRIN. [Concomitant]
     Active Substance: ASPIRIN
  17. FLUTICASONE. [Concomitant]
     Active Substance: FLUTICASONE
  18. SIMVASTATIN. [Concomitant]
     Active Substance: SIMVASTATIN
  19. SOLIFENACIN [Concomitant]
     Active Substance: SOLIFENACIN
  20. ACIPHEX [Suspect]
     Active Substance: RABEPRAZOLE SODIUM
     Indication: GASTROOESOPHAGEAL REFLUX DISEASE
     Route: 065
  21. LOSARTAN. [Concomitant]
     Active Substance: LOSARTAN
  22. LASIX [Concomitant]
     Active Substance: FUROSEMIDE
  23. IPRATROPIUM [Concomitant]
     Active Substance: IPRATROPIUM
  24. PRILOSEC [Suspect]
     Active Substance: OMEPRAZOLE MAGNESIUM
     Indication: GASTROOESOPHAGEAL REFLUX DISEASE
     Dosage: GENERIC
     Route: 065
  25. PROTONIX [Suspect]
     Active Substance: PANTOPRAZOLE SODIUM
     Indication: GASTROOESOPHAGEAL REFLUX DISEASE
     Route: 065
  26. HALDOL [Concomitant]
     Active Substance: HALOPERIDOL
  27. PEPCID [Concomitant]
     Active Substance: FAMOTIDINE
  28. TEMAZEPAM. [Concomitant]
     Active Substance: TEMAZEPAM
  29. METOPROLOL. [Concomitant]
     Active Substance: METOPROLOL
  30. PREVACID [Suspect]
     Active Substance: LANSOPRAZOLE
     Indication: GASTROOESOPHAGEAL REFLUX DISEASE
     Route: 065
  31. LISINOPRIL. [Concomitant]
     Active Substance: LISINOPRIL
  32. FUROSEMIDE. [Concomitant]
     Active Substance: FUROSEMIDE
  33. LIPEX [Concomitant]
  34. CYCLOBENZAPRINE. [Concomitant]
     Active Substance: CYCLOBENZAPRINE
  35. ALLOPURINOL. [Concomitant]
     Active Substance: ALLOPURINOL
  36. BUDESONIDE. [Concomitant]
     Active Substance: BUDESONIDE
  37. SILDENAFIL. [Concomitant]
     Active Substance: SILDENAFIL
  38. SIMVASTATIN. [Concomitant]
     Active Substance: SIMVASTATIN
  39. ZANTAC [Concomitant]
     Active Substance: RANITIDINE HYDROCHLORIDE
  40. TRAZODONE [Concomitant]
     Active Substance: TRAZODONE HYDROCHLORIDE
  41. SENNA?DOCUSATE [Concomitant]
     Active Substance: DOCUSATE SODIUM\SENNOSIDES

REACTIONS (2)
  - Chronic kidney disease [Not Recovered/Not Resolved]
  - Gastrooesophageal reflux disease [Not Recovered/Not Resolved]

NARRATIVE: CASE EVENT DATE: 2015
